FAERS Safety Report 4589770-X (Version None)
Quarter: 2005Q1

REPORT INFORMATION
  Report Type: 
  Country: None (occurrence: None)
  Receive Date: 20050223
  Receipt Date: 20050215
  Transmission Date: 20050727
  Serious: Yes (Death, Other)
  Sender: FDA-Public Use
  Company Number: PHBS2005TR02570

PATIENT
  Age: 40 Year
  Sex: Male

DRUGS (2)
  1. CYCLOSPORINE [Suspect]
  2. PREDNISOLONE [Concomitant]

REACTIONS (9)
  - BETA 2 MICROGLOBULIN INCREASED [None]
  - CYTOMEGALOVIRUS ANTIGEN POSITIVE [None]
  - CYTOMEGALOVIRUS HEPATITIS [None]
  - EXCORIATION [None]
  - GRAFT VERSUS HOST DISEASE [None]
  - HYPERGAMMAGLOBULINAEMIA [None]
  - LIVER FUNCTION TEST ABNORMAL [None]
  - LUNG INFECTION [None]
  - LYMPHOPROLIFERATIVE DISORDER [None]
